FAERS Safety Report 6730824-7 (Version None)
Quarter: 2010Q2

REPORT INFORMATION
  Report Type: 
  Country: None (occurrence: None)
  Receive Date: 20100514
  Receipt Date: 20100428
  Transmission Date: 20101027
  Serious: Yes (Other)
  Sender: FDA-Public Use
  Company Number: DSA_43103_2010

PATIENT
  Sex: Female

DRUGS (2)
  1. ELONTRIL               (ELONTRIL - BUPROPION HYDROCHLORIDE) (NOT SPECI [Suspect]
     Indication: DRUG USE FOR UNKNOWN INDICATION
     Dosage: 150 MG, NOT THE PRESCRIBED AMOUNT (1800 MG), ORAL
     Route: 048
  2. TREVILOR          (TREVILOR - VENLAFAXIN HYDROCHLORIDE) (NOT SPECIFIED [Suspect]
     Indication: DRUG USE FOR UNKNOWN INDICATION
     Dosage: (150 MG), NOT THE PRESCRIBED AMOUNT (3300 MG) ORAL
     Route: 048

REACTIONS (4)
  - DRUG ABUSE [None]
  - MENTAL IMPAIRMENT [None]
  - MULTIPLE DRUG OVERDOSE [None]
  - TREMOR [None]
